FAERS Safety Report 5763038-8 (Version None)
Quarter: 2008Q2

REPORT INFORMATION
  Report Type: 
  Country: None (occurrence: None)
  Receive Date: 20080602
  Receipt Date: 20080226
  Transmission Date: 20081010
  Serious: No
  Sender: FDA-Public Use
  Company Number: PHEH2008US02282

PATIENT

DRUGS (2)
  1. TEKTURNA [Suspect]
     Dosage: QD, ORAL
     Route: 048
  2. ANGIOTENSIN II ANTAGONISTS(NO INGREDIENTS/SUBSTANCES) [Suspect]

REACTIONS (1)
  - BLOOD POTASSIUM INCREASED [None]
